FAERS Safety Report 7724406-8 (Version None)
Quarter: 2011Q3

REPORT INFORMATION
  Report Type: 
  Country: None (occurrence: None)
  Receive Date: 20110901
  Receipt Date: 20110829
  Transmission Date: 20111222
  Serious: Yes (Other)
  Sender: FDA-Public Use
  Company Number: US-B.I. PHARMACEUTICALS,INC./RIDGEFIELD-2011-BP-15865BP

PATIENT
  Age: 68 Year
  Sex: Female

DRUGS (10)
  1. SINGULAIR [Concomitant]
     Indication: MULTIPLE ALLERGIES
     Dosage: 10 MG
     Route: 048
  2. AMBIEN [Concomitant]
     Indication: SLEEP DISORDER
     Dosage: 5 MG
     Route: 048
     Dates: start: 20010101
  3. PRADAXA [Suspect]
     Indication: ATRIAL FIBRILLATION
     Dosage: 300 MG
     Route: 048
     Dates: start: 20110201, end: 20110612
  4. ZETIA [Concomitant]
     Indication: BLOOD CHOLESTEROL INCREASED
     Dosage: 10 MG
     Route: 048
  5. BONIVA [Concomitant]
     Indication: OSTEOPOROSIS
     Dosage: 5 MG
     Route: 048
  6. BCG INJECTIONS [Concomitant]
     Indication: MALIGNANT MELANOMA STAGE III
     Dates: start: 20080101
  7. WARFARIN SODIUM [Concomitant]
     Dosage: 2.5 MG
  8. MAXZIDE [Concomitant]
     Indication: HYPERTENSION
     Dosage: DAILY DOSE: 50/75MG
     Route: 048
  9. ALBUTEROL SULFATE AUTOHALER [Concomitant]
     Indication: ASTHMA
     Route: 055
  10. ESTERPATE [Concomitant]
     Indication: HORMONE REPLACEMENT THERAPY
     Dosage: 0.625 MG
     Route: 048

REACTIONS (1)
  - TRANSIENT ISCHAEMIC ATTACK [None]
